FAERS Safety Report 8224569-4 (Version None)
Quarter: 2012Q1

REPORT INFORMATION
  Report Type: 
  Country: None (occurrence: None)
  Receive Date: 20120319
  Receipt Date: 20120306
  Transmission Date: 20120608
  Serious: Yes (Hospitalization)
  Sender: FDA-Public Use
  Company Number: UTC-015512

PATIENT
  Age: 68 Year
  Sex: Female
  Weight: 85 kg

DRUGS (6)
  1. REMODULIN [Suspect]
     Indication: COR PULMONALE CHRONIC
     Dosage: 59.04 UG/KG (0.041 UG/KG, 1 IN 1 MIN), SUBCUTANEOUS
     Route: 058
     Dates: start: 20111201
  2. REMODULIN [Suspect]
     Indication: PULMONARY HYPERTENSION
     Dosage: 59.04 UG/KG (0.041 UG/KG, 1 IN 1 MIN), SUBCUTANEOUS
     Route: 058
     Dates: start: 20111201
  3. HYDROCHLOROTHIAZIDE [Concomitant]
  4. ASPIRIN [Concomitant]
  5. DIURETICS (DIURETICS) [Concomitant]
  6. ADCIRCA [Concomitant]

REACTIONS (8)
  - FLUID RETENTION [None]
  - MEDICAL DEVICE COMPLICATION [None]
  - DYSPNOEA [None]
  - FLUSHING [None]
  - RIGHT VENTRICULAR FAILURE [None]
  - DIZZINESS [None]
  - DYSPNOEA EXERTIONAL [None]
  - HEADACHE [None]
